FAERS Safety Report 7554762-5 (Version None)
Quarter: 2011Q2

REPORT INFORMATION
  Report Type: 
  Country: None (occurrence: None)
  Receive Date: 20110617
  Receipt Date: 20110606
  Transmission Date: 20111010
  Serious: Yes (Other)
  Sender: FDA-Public Use
  Company Number: US-PFIZER INC-2011122750

PATIENT
  Sex: Female
  Weight: 90.703 kg

DRUGS (6)
  1. PROTONIX [Concomitant]
     Dosage: UNK
  2. PRISTIQ [Suspect]
     Indication: DEPRESSION
     Dosage: 50 MG, 1X/DAY
     Route: 048
     Dates: start: 20110505
  3. TOPROL-XL [Concomitant]
     Dosage: UNK
  4. ASPIRIN [Concomitant]
     Dosage: 81 MG, UNK
  5. TOVIAZ [Concomitant]
     Dosage: UNK
  6. CRESTOR [Concomitant]
     Dosage: UNK

REACTIONS (1)
  - EYE HAEMORRHAGE [None]
